FAERS Safety Report 20975367 (Version 2)
Quarter: 2022Q4

REPORT INFORMATION
  Report Type: Other
  Country: IT (occurrence: None)
  Receive Date: 20220617
  Receipt Date: 20221014
  Transmission Date: 20230112
  Serious: No
  Sender: FDA-Public Use
  Company Number: IT-ROCHE-3118809

PATIENT
  Age: 45 Year
  Sex: Male

DRUGS (1)
  1. OCRELIZUMAB [Suspect]
     Active Substance: OCRELIZUMAB
     Indication: Relapsing-remitting multiple sclerosis
     Dosage: SUBSEQUENT DOSES OF OCRELIZUMAB WAS RECEIVED ON 11/DEC/2020 (250 ML), 16/JUL/2021 (500 ML), 27/JAN/2
     Route: 042
     Dates: start: 20201127

REACTIONS (1)
  - COVID-19 [Recovered/Resolved]

NARRATIVE: CASE EVENT DATE: 20211227
